FAERS Safety Report 18108836 (Version 1)
Quarter: 2020Q3

REPORT INFORMATION
  Report Type: Report from Study
  Country: IN (occurrence: IN)
  Receive Date: 20200804
  Receipt Date: 20200804
  Transmission Date: 20201103
  Serious: Yes (Other)
  Sender: FDA-Public Use
  Company Number: IN-BAYER-2020-150740

PATIENT
  Age: 58 Year
  Sex: Male

DRUGS (4)
  1. AZITHROMYCIN ANHYDROUS. [Concomitant]
     Active Substance: AZITHROMYCIN ANHYDROUS
     Indication: COVID-19
  2. CHLOROQUINE. [Suspect]
     Active Substance: CHLOROQUINE
     Indication: COVID-19
  3. OSELTAMIVIR [Concomitant]
     Active Substance: OSELTAMIVIR
     Indication: COVID-19
  4. LOPINAVIR/RITONAVIR [Concomitant]
     Active Substance: LOPINAVIR\RITONAVIR
     Indication: COVID-19

REACTIONS (3)
  - Vomiting [None]
  - Acute psychosis [None]
  - Nausea [None]
